FAERS Safety Report 8326216-X (Version None)
Quarter: 2012Q2

REPORT INFORMATION
  Report Type: 
  Country: None (occurrence: None)
  Receive Date: 20120501
  Receipt Date: 20120423
  Transmission Date: 20120825
  Serious: Yes (Life-Threatening, Other)
  Sender: FDA-Public Use
  Company Number: TR-ROXANE LABORATORIES, INC.-2012-RO-01106RO

PATIENT
  Age: 34 Week
  Sex: Female

DRUGS (2)
  1. METFORMIN HCL [Suspect]
     Route: 048
  2. SERTRALINE HYDROCHLORIDE [Suspect]
     Route: 048

REACTIONS (5)
  - TOXICITY TO VARIOUS AGENTS [None]
  - BLOOD SODIUM DECREASED [None]
  - HAEMODIALYSIS [None]
  - SUICIDE ATTEMPT [None]
  - LACTIC ACIDOSIS [None]
